FAERS Safety Report 9162205 (Version 1)
Quarter: 2013Q1

REPORT INFORMATION
  Report Type: Spontaneous
  Country: US (occurrence: None)
  Receive Date: 20130222
  Receipt Date: 20130222
  Transmission Date: 20140127
  Serious: Yes (Other)
  Sender: FDA-Public Use
  Company Number: ACO_21626_2011

PATIENT
  Age: 37 Year
  Sex: Female

DRUGS (3)
  1. AMPYRA [Suspect]
     Dates: start: 201010, end: 20110101
  2. TYSABRI (NATALIZUMAB) [Concomitant]
  3. COUMADIN? /00014802/ [Concomitant]

REACTIONS (3)
  - Convulsion [None]
  - Tremor [None]
  - Urinary tract infection [None]
